FAERS Safety Report 15285923 (Version 1)
Quarter: 2018Q4

REPORT INFORMATION
  Report Type: Spontaneous
  Country: US (occurrence: US)
  Receive Date: 20180816
  Receipt Date: 20180816
  Transmission Date: 20190204
  Serious: No
  Sender: FDA-Public Use
  Company Number: US-TEVA-2018-US-943178

PATIENT
  Sex: Female

DRUGS (1)
  1. AZURETTE [Suspect]
     Active Substance: DESOGESTREL\ETHINYL ESTRADIOL
     Indication: CONTRACEPTION
     Dosage: FORM STRENGTH: 0.15/0.02 AND 0.01
     Route: 065
     Dates: start: 1998

REACTIONS (1)
  - Malaise [Unknown]
